FAERS Safety Report 8507155-8 (Version None)
Quarter: 2012Q3

REPORT INFORMATION
  Report Type: 
  Country: None (occurrence: None)
  Receive Date: 20120712
  Receipt Date: 20120710
  Transmission Date: 20120928
  Serious: Yes (Death, Hospitalization)
  Sender: FDA-Public Use
  Company Number: VE-PFIZER INC-2012160435

PATIENT
  Sex: Male

DRUGS (2)
  1. LYRICA [Concomitant]
     Dosage: UNK
  2. LIPITOR [Suspect]
     Dosage: 40 MG, UNK

REACTIONS (2)
  - NEOPLASM MALIGNANT [None]
  - DEATH [None]
